FAERS Safety Report 14739831 (Version 2)
Quarter: 2018Q2

REPORT INFORMATION
  Report Type: Report from Study
  Country: DE (occurrence: DE)
  Receive Date: 20180410
  Receipt Date: 20180423
  Transmission Date: 20180711
  Serious: Yes (Hospitalization)
  Sender: FDA-Public Use
  Company Number: DE-ROCHE-2104355

PATIENT
  Sex: Male

DRUGS (22)
  1. KALIUMCHLORIDE [Concomitant]
     Indication: HYPOKALAEMIA
     Dosage: 60 MUMOL, QD
     Route: 042
     Dates: start: 20180325
  2. PREDNISONE. [Suspect]
     Active Substance: PREDNISONE
     Indication: B-CELL LYMPHOMA
     Dosage: FOR 5 DAYS
     Route: 048
     Dates: start: 20180316, end: 20180320
  3. METOPROLOL. [Concomitant]
     Active Substance: METOPROLOL
     Indication: ATRIAL FIBRILLATION
     Dosage: 5 MG, QD FOR 1 DAY
     Route: 042
     Dates: start: 20180324, end: 20180324
  4. METRONIDAZOLE. [Concomitant]
     Active Substance: METRONIDAZOLE
     Indication: INFECTION
     Dosage: 500 MG/L, TID
     Route: 042
     Dates: start: 20180324
  5. PIPERACILLIN [Concomitant]
     Active Substance: PIPERACILLIN
     Indication: INFECTION
     Dosage: 4/0.5 MG, TID FOR 2 DAYS
     Route: 042
     Dates: start: 20180324, end: 20180325
  6. HEPARIN SODIUM. [Concomitant]
     Active Substance: HEPARIN SODIUM
     Indication: PROPHYLAXIS
     Dosage: 6000 IE/ML, QD
     Route: 042
     Dates: start: 20180325
  7. TAZOBACTAM [Concomitant]
     Active Substance: TAZOBACTAM
     Indication: OEDEMA
     Dosage: 10 MG, QD
     Route: 048
     Dates: start: 20180324, end: 20180325
  8. CYCLOPHOSPHAMIDE. [Suspect]
     Active Substance: CYCLOPHOSPHAMIDE
     Indication: B-CELL LYMPHOMA
     Dosage: FOR 1 DAY
     Route: 042
     Dates: start: 20180316, end: 20180316
  9. DIGITOXIN [Concomitant]
     Active Substance: DIGITOXIN
     Indication: ATRIAL FIBRILLATION
     Dosage: 0.25 MG, (1/2-0-0) FOR 1 DAY
     Route: 042
     Dates: start: 20180324, end: 20180324
  10. DOXORUBICIN [Suspect]
     Active Substance: DOXORUBICIN
     Indication: B-CELL LYMPHOMA
     Dosage: FOR 1 DAY
     Route: 042
     Dates: start: 20180316, end: 20180316
  11. MEROPENEM. [Concomitant]
     Active Substance: MEROPENEM
     Indication: INFECTION
     Dosage: 1 G, TID
     Route: 042
     Dates: start: 20180325
  12. FEBUXOSTAT. [Concomitant]
     Active Substance: FEBUXOSTAT
     Indication: HYPERURICAEMIA
     Dosage: 80 MG, QD
     Route: 048
     Dates: start: 20180305
  13. VINCRISTINE [Suspect]
     Active Substance: VINCRISTINE
     Indication: B-CELL LYMPHOMA
     Dosage: FOR 1 DAY
     Route: 042
     Dates: start: 20180316, end: 20180316
  14. FOLIC ACID. [Concomitant]
     Active Substance: FOLIC ACID
     Indication: FOLATE DEFICIENCY
     Dosage: 5 MG, BID
     Route: 048
     Dates: start: 20180326
  15. TORASEMID [Concomitant]
     Active Substance: TORSEMIDE
     Indication: OEDEMA
     Dosage: 10 MG, QD
     Route: 048
     Dates: start: 20180328
  16. PEGFILGRASTIM [Suspect]
     Active Substance: PEGFILGRASTIM
     Indication: B-CELL LYMPHOMA
     Dosage: 6 MG, QD FOR 1 DAY
     Route: 058
     Dates: start: 20180319, end: 20180319
  17. PREGABALIN. [Concomitant]
     Active Substance: PREGABALIN
     Indication: PAIN
     Dosage: 50 MG, QD
     Route: 048
     Dates: start: 20180302
  18. FENOFIBRAT [Concomitant]
     Active Substance: FENOFIBRATE
     Indication: HYPERCHOLESTEROLAEMIA
     Dosage: 250 MG, QD
     Route: 048
     Dates: start: 20180302
  19. ACYCLOVIR. [Concomitant]
     Active Substance: ACYCLOVIR
     Indication: INFECTION PROPHYLAXIS
     Dosage: 250 MG, BID
     Route: 042
     Dates: start: 20180328
  20. RITUXIMAB. [Suspect]
     Active Substance: RITUXIMAB
     Indication: B-CELL LYMPHOMA
     Dosage: FOR 1 DAY
     Route: 042
     Dates: start: 20180315, end: 20180315
  21. PANTOPRAZOL [Concomitant]
     Active Substance: PANTOPRAZOLE SODIUM
     Indication: PROPHYLAXIS AGAINST GASTROINTESTINAL ULCER
     Dosage: 40 MG, QD
     Route: 048
     Dates: start: 20180307
  22. NALOXONE HYDROCHLORIDE/OXYCODONE HYDROCHLORIDE [Concomitant]
     Indication: PAIN
     Dosage: 10/6 MG, BID (1-0-1)
     Route: 048
     Dates: start: 20180302

REACTIONS (1)
  - Thrombosis [Unknown]

NARRATIVE: CASE EVENT DATE: 20180326
